FAERS Safety Report 12439471 (Version 1)
Quarter: 2016Q2

REPORT INFORMATION
  Report Type: Spontaneous
  Country: US (occurrence: US)
  Receive Date: 20160606
  Receipt Date: 20160606
  Transmission Date: 20160815
  Serious: No
  Sender: FDA-Public Use
  Company Number: US-B.I. PHARMACEUTICALS,INC./RIDGEFIELD-2016-BI-33246BP

PATIENT
  Age: 54 Year
  Sex: Female

DRUGS (1)
  1. STIOLTO RESPIMAT [Suspect]
     Active Substance: OLODATEROL HYDROCHLORIDE\TIOTROPIUM BROMIDE MONOHYDRATE
     Indication: PULMONARY OEDEMA
     Dosage: DOSE PER APPLICATION: 2.5 MG / 2.5 MG;DAILY DOSE-5MG/5MG
     Route: 055
     Dates: start: 20160520

REACTIONS (2)
  - Off label use [Unknown]
  - Incorrect drug dosage form administered [Recovered/Resolved]

NARRATIVE: CASE EVENT DATE: 20160520
